FAERS Safety Report 5100136-6 (Version None)
Quarter: 2006Q3

REPORT INFORMATION
  Report Type: 
  Country: None (occurrence: None)
  Receive Date: 20060731
  Receipt Date: 20060307
  Transmission Date: 20061208
  Serious: Yes (Other)
  Sender: FDA-Public Use
  Company Number: US-JNJFOC-20041006782

PATIENT
  Age: 41 Year
  Sex: Male
  Weight: 101.1521 kg

DRUGS (14)
  1. RISPERDAL [Suspect]
     Indication: BIPOLAR DISORDER
     Dosage: SEE IMAGE
     Route: 048
     Dates: start: 20010103, end: 20010216
  2. RISPERDAL [Suspect]
     Indication: BIPOLAR DISORDER
     Dosage: SEE IMAGE
     Route: 048
     Dates: start: 20010216, end: 20010518
  3. RISPERDAL [Suspect]
     Indication: BIPOLAR DISORDER
     Dosage: SEE IMAGE
     Route: 048
     Dates: start: 20010518, end: 20010613
  4. RISPERDAL [Suspect]
     Indication: BIPOLAR DISORDER
     Dosage: SEE IMAGE
     Route: 048
     Dates: start: 20010613, end: 20011015
  5. RISPERDAL [Suspect]
     Indication: BIPOLAR DISORDER
     Dosage: SEE IMAGE
     Route: 048
     Dates: start: 20011228
  6. DICYCLOMINE [Suspect]
     Indication: DRUG USE FOR UNKNOWN INDICATION
     Dates: end: 20010205
  7. ZYPREXA [Concomitant]
  8. AMBIEN [Concomitant]
  9. ADDERAL (OBETROL) [Concomitant]
  10. PAXIL [Concomitant]
  11. ZOLOFT [Concomitant]
  12. ZEXIUM (ESOMEPRAZOLE) [Concomitant]
  13. PHENTERMINE HCL [Concomitant]
  14. XENICAL [Concomitant]

REACTIONS (17)
  - ABDOMINAL DISTENSION [None]
  - ABDOMINAL PAIN [None]
  - ANXIETY [None]
  - CHOLELITHIASIS [None]
  - DECREASED APPETITE [None]
  - DEPRESSION [None]
  - DIZZINESS [None]
  - DYSTONIA [None]
  - EXTRAPYRAMIDAL DISORDER [None]
  - GALLBLADDER POLYP [None]
  - HEPATIC STEATOSIS [None]
  - HYPERHIDROSIS [None]
  - LETHARGY [None]
  - NAUSEA [None]
  - RENAL CYST [None]
  - TARDIVE DYSKINESIA [None]
  - WEIGHT INCREASED [None]
